FAERS Safety Report 8576511-4 (Version None)
Quarter: 2012Q3

REPORT INFORMATION
  Report Type: 
  Country: None (occurrence: None)
  Receive Date: 20120807
  Receipt Date: 20120805
  Transmission Date: 20120928
  Serious: No
  Sender: FDA-Public Use
  Company Number: US-PFIZER INC-2012189537

PATIENT
  Age: 76 Year
  Sex: Female
  Weight: 89 kg

DRUGS (1)
  1. CELEBREX [Suspect]
     Dosage: UNK
     Route: 048
     Dates: start: 20120701

REACTIONS (1)
  - HAIR DISORDER [None]
